FAERS Safety Report 19593097 (Version 7)
Quarter: 2022Q3

REPORT INFORMATION
  Report Type: Report from Study
  Country: CO (occurrence: CO)
  Receive Date: 20210722
  Receipt Date: 20220919
  Transmission Date: 20221026
  Serious: Yes (Hospitalization, Other)
  Sender: FDA-Public Use
  Company Number: CO-AMGEN-COLSL2020168500

PATIENT
  Age: 51 Year
  Sex: Female

DRUGS (3)
  1. VECTIBIX [Suspect]
     Active Substance: PANITUMUMAB
     Indication: Colorectal cancer metastatic
     Dosage: 300 MILLIGRAM, Q2WK (BIWEEKLY)
     Route: 042
     Dates: start: 20190806
  2. VECTIBIX [Suspect]
     Active Substance: PANITUMUMAB
     Dosage: 300 MILLIGRAM, Q2WK (BIWEEKLY)
     Route: 042
     Dates: end: 20220711
  3. POLYVINYL ALCOHOL\POVIDONE [Concomitant]
     Active Substance: POLYVINYL ALCOHOL\POVIDONE
     Dosage: UNK UNK, Q12H (APPLY IN EACH EYE)
     Dates: start: 20201118

REACTIONS (6)
  - Haemoglobin decreased [Recovering/Resolving]
  - Brain neoplasm [Recovered/Resolved]
  - Blood iron decreased [Recovering/Resolving]
  - Skin reaction [Not Recovered/Not Resolved]
  - Dry mouth [Not Recovered/Not Resolved]
  - Dry skin [Not Recovered/Not Resolved]

NARRATIVE: CASE EVENT DATE: 20200101
